APPROVED DRUG PRODUCT: AMONDYS 45
Active Ingredient: CASIMERSEN
Strength: 100MG/2ML (50MG/ML)
Dosage Form/Route: SOLUTION;INTRAVENOUS
Application: N213026 | Product #001
Applicant: SAREPTA THERAPEUTICS INC
Approved: Feb 25, 2021 | RLD: Yes | RS: Yes | Type: RX

PATENTS:
Patent 9758783 | Expires: Nov 12, 2030
Patent 9758783 | Expires: Nov 12, 2030
Patent 10781450 | Expires: Nov 12, 2030
Patent RE48960 | Expires: Feb 16, 2029
Patent RE48960 | Expires: Feb 16, 2029
Patent 10287586 | Expires: Nov 12, 2030
Patent 9228187 | Expires: Nov 12, 2030

EXCLUSIVITY:
Code: NCE | Date: Feb 25, 2026
Code: ODE-347 | Date: Feb 25, 2028